FAERS Safety Report 16962442 (Version 1)
Quarter: 2019Q4

REPORT INFORMATION
  Report Type: Spontaneous
  Country: US (occurrence: US)
  Receive Date: 20191025
  Receipt Date: 20191025
  Transmission Date: 20200122
  Serious: Yes (Life-Threatening, Hospitalization, Disabling, Other)
  Sender: FDA-Public Use
  Company Number: None

PATIENT
  Age: 60 Year
  Sex: Male
  Weight: 85.5 kg

DRUGS (6)
  1. MYFORTIC [Concomitant]
     Active Substance: MYCOPHENOLATE SODIUM
  2. AMOXICILLIN/CLAVULANATE 875/125MG TAB [Suspect]
     Active Substance: AMOXICILLIN\CLAVULANATE POTASSIUM
     Indication: STREPTOCOCCAL INFECTION
     Dosage: ?          QUANTITY:42 TABLET(S);?
     Route: 048
     Dates: start: 20180518, end: 20180607
  3. VITAMIN C [Concomitant]
     Active Substance: ASCORBIC ACID
  4. MELOXICAM. [Concomitant]
     Active Substance: MELOXICAM
  5. TACROLIMUS. [Concomitant]
     Active Substance: TACROLIMUS
  6. EMERGN-C [Concomitant]

REACTIONS (11)
  - Vanishing bile duct syndrome [None]
  - Weight decreased [None]
  - Hepatitis [None]
  - Gastrooesophageal reflux disease [None]
  - Decreased appetite [None]
  - Thunderclap headache [None]
  - Pruritus [None]
  - Yellow skin [None]
  - Liver transplant [None]
  - Abdominal pain upper [None]
  - Drug-induced liver injury [None]

NARRATIVE: CASE EVENT DATE: 20190127
